FAERS Safety Report 5740114-7 (Version None)
Quarter: 2008Q2

REPORT INFORMATION
  Report Type: 
  Country: None (occurrence: None)
  Receive Date: 20080513
  Receipt Date: 20080428
  Transmission Date: 20081010
  Serious: Yes (Hospitalization)
  Sender: FDA-Public Use
  Company Number: 2008S1006274

PATIENT
  Age: 50 Year
  Sex: Male

DRUGS (6)
  1. PHENYTOIN [Suspect]
     Indication: EPILEPSY
     Dosage: 300 MG; DAILY;
  2. OMEPRAZOLE [Suspect]
     Indication: DRUG USE FOR UNKNOWN INDICATION
  3. INSULIN [Concomitant]
  4. VITAMIN B COMP /01753401/ [Concomitant]
  5. ATORVASTATIN CALCIUM [Concomitant]
  6. SPIRONOLACTONE [Concomitant]

REACTIONS (12)
  - ANAEMIA MACROCYTIC [None]
  - BALANCE DISORDER [None]
  - CEREBELLAR SYNDROME [None]
  - CONVULSION [None]
  - DRUG INTERACTION [None]
  - DYSARTHRIA [None]
  - LIVER DISORDER [None]
  - LIVER FUNCTION TEST ABNORMAL [None]
  - NYSTAGMUS [None]
  - PROTHROMBIN TIME PROLONGED [None]
  - THERAPEUTIC AGENT TOXICITY [None]
  - THROMBOCYTHAEMIA [None]
